FAERS Safety Report 13478133 (Version 3)
Quarter: 2017Q2

REPORT INFORMATION
  Report Type: Spontaneous
  Country: US (occurrence: US)
  Receive Date: 20170425
  Receipt Date: 20170630
  Transmission Date: 20170830
  Serious: Yes (Hospitalization)
  Sender: FDA-Public Use
  Company Number: US-VERTEX PHARMACEUTICALS-2017-002231

PATIENT
  Age: 16 Year
  Sex: Male

DRUGS (3)
  1. ORKAMBI [Suspect]
     Active Substance: IVACAFTOR\LUMACAFTOR
     Indication: CYSTIC FIBROSIS
     Dosage: 2 DF (200-125 MG EACH), BID
     Route: 048
     Dates: start: 20150904
  2. TOBRAMYCIN. [Concomitant]
     Active Substance: TOBRAMYCIN
  3. PULMOZYME [Concomitant]
     Active Substance: DORNASE ALFA

REACTIONS (3)
  - Haemoptysis [Recovered/Resolved]
  - Cystic fibrosis [Unknown]
  - Depressed mood [Unknown]

NARRATIVE: CASE EVENT DATE: 20170411
